FAERS Safety Report 10217573 (Version 2)
Quarter: 2015Q3

REPORT INFORMATION
  Report Type: Spontaneous
  Country: US (occurrence: US)
  Receive Date: 20140604
  Receipt Date: 20150804
  Transmission Date: 20151125
  Serious: Yes (Other)
  Sender: FDA-Public Use
  Company Number: US-ABBVIE-14P-163-1242519-00

PATIENT
  Sex: Male

DRUGS (1)
  1. ANDROGEL [Suspect]
     Active Substance: TESTOSTERONE
     Indication: BLOOD TESTOSTERONE DECREASED
     Route: 065
     Dates: start: 200808, end: 200903

REACTIONS (6)
  - Injury [Unknown]
  - Anhedonia [Unknown]
  - Loss of employment [Unknown]
  - Emotional distress [Unknown]
  - Acute myocardial infarction [Unknown]
  - Economic problem [Unknown]

NARRATIVE: CASE EVENT DATE: 20081205
